FAERS Safety Report 18683170 (Version 1)
Quarter: 2020Q4

REPORT INFORMATION
  Report Type: Spontaneous
  Country: FR (occurrence: FR)
  Receive Date: 20201230
  Receipt Date: 20201230
  Transmission Date: 20210114
  Serious: Yes (Other)
  Sender: FDA-Public Use
  Company Number: FR-AMGEN-FRASP2020210089

PATIENT

DRUGS (1)
  1. PROLIA [Suspect]
     Active Substance: DENOSUMAB
     Indication: OSTEOPOROSIS
     Dosage: 60 MILLIGRAM
     Route: 065

REACTIONS (7)
  - Back pain [Unknown]
  - Endocarditis [Unknown]
  - Multiple fractures [Unknown]
  - Myalgia [Unknown]
  - Osteonecrosis [Unknown]
  - Immune system disorder [Unknown]
  - Bone pain [Unknown]
